FAERS Safety Report 6166683-3 (Version None)
Quarter: 2009Q2

REPORT INFORMATION
  Report Type: 
  Country: None (occurrence: None)
  Receive Date: 20090423
  Receipt Date: 20090423
  Transmission Date: 20091009
  Serious: Yes (Death)
  Sender: FDA-Public Use
  Company Number: None

PATIENT
  Sex: Female
  Weight: 232.2417 kg

DRUGS (2)
  1. AVINZA [Suspect]
     Indication: PAIN
     Dosage: 30 MG Q12H PO
     Route: 048
     Dates: start: 20081028, end: 20081101
  2. OXYCODONE HCL [Suspect]
     Indication: PAIN
     Dosage: 15 MG Q 4H PRN PO
     Route: 048
     Dates: start: 20081028, end: 20081101

REACTIONS (2)
  - ALCOHOL USE [None]
  - OVERDOSE [None]
